FAERS Safety Report 12138769 (Version 2)
Quarter: 2016Q1

REPORT INFORMATION
  Report Type: Report from Study
  Country: US (occurrence: US)
  Receive Date: 20160302
  Receipt Date: 20160307
  Transmission Date: 20160526
  Serious: Yes (Hospitalization)
  Sender: FDA-Public Use
  Company Number: US-ABBVIE-16K-163-1568844-00

PATIENT
  Age: 31 Year
  Sex: Female
  Weight: 74.91 kg

DRUGS (2)
  1. LIALDA [Concomitant]
     Active Substance: MESALAMINE
     Indication: PRODUCT USED FOR UNKNOWN INDICATION
  2. HUMIRA [Suspect]
     Active Substance: ADALIMUMAB
     Indication: COLITIS ULCERATIVE
     Route: 058
     Dates: start: 20151027

REACTIONS (2)
  - Pulmonary thrombosis [Recovering/Resolving]
  - Pulmonary artery thrombosis [Recovering/Resolving]

NARRATIVE: CASE EVENT DATE: 20160204
